FAERS Safety Report 9090356 (Version 1)
Quarter: 2013Q1

REPORT INFORMATION
  Report Type: Report from Study
  Country: US (occurrence: US)
  Receive Date: 20130131
  Receipt Date: 20130131
  Transmission Date: 20140127
  Serious: No
  Sender: FDA-Public Use
  Company Number: US-ABBOTT-12P-163-0990518-00

PATIENT
  Sex: Male

DRUGS (3)
  1. HUMIRA [Suspect]
     Indication: CROHN^S DISEASE
     Dosage: 160MG ON DAY 1 (4 PENS)
     Route: 058
     Dates: start: 201209, end: 201209
  2. HUMIRA [Suspect]
     Dosage: 80MG ON DAY 18 (2 PENS)
     Route: 058
  3. HUMIRA [Suspect]
     Dosage: 40MG ON DAY 31 (1 PEN) AS DIRECTED
     Route: 058

REACTIONS (1)
  - Injection site pain [Unknown]
